FAERS Safety Report 19996304 (Version 1)
Quarter: 2021Q4

REPORT INFORMATION
  Report Type: Spontaneous
  Country: US (occurrence: US)
  Receive Date: 20211026
  Receipt Date: 20211026
  Transmission Date: 20220304
  Serious: Yes (Disabling)
  Sender: FDA-Public Use
  Company Number: None

PATIENT
  Age: 47 Year
  Sex: Female
  Weight: 67.05 kg

DRUGS (3)
  1. FLUOCINONIDE [Suspect]
     Active Substance: FLUOCINONIDE
     Indication: Eczema
  2. CLOBETASOL [Suspect]
     Active Substance: CLOBETASOL
  3. VITAMINS [Concomitant]
     Active Substance: VITAMINS

REACTIONS (7)
  - Eczema [None]
  - Steroid withdrawal syndrome [None]
  - Skin burning sensation [None]
  - Skin atrophy [None]
  - Pain in extremity [None]
  - Pain in extremity [None]
  - Steroid dependence [None]

NARRATIVE: CASE EVENT DATE: 20210906
